FAERS Safety Report 9608386 (Version 2)
Quarter: 2013Q4

REPORT INFORMATION
  Report Type: Report from Study
  Country: NL (occurrence: NL)
  Receive Date: 20131009
  Receipt Date: 20131209
  Transmission Date: 20140711
  Serious: Yes (Hospitalization)
  Sender: FDA-Public Use
  Company Number: PHHY2013NL112650

PATIENT
  Sex: Male

DRUGS (4)
  1. SANDOSTATIN LAR [Suspect]
     Indication: NEUROENDOCRINE TUMOUR
     Dosage: 30 MG PER 2 ML UNK
     Route: 030
  2. SANDOSTATIN LAR [Suspect]
     Dosage: 30 MG PER 2 ML UNK
     Route: 030
     Dates: start: 20130924
  3. SANDOSTATIN LAR [Suspect]
     Dosage: 30 MG PER 2 ML UNK
     Route: 030
     Dates: start: 20131121
  4. SANDOSTATIN LAR [Suspect]
     Dosage: 30 MG PER 2 ML UNK
     Route: 030
     Dates: start: 20131205

REACTIONS (3)
  - Blood calcium increased [Unknown]
  - Fatigue [Unknown]
  - Incorrect route of drug administration [Unknown]
